FAERS Safety Report 8917358 (Version 2)
Quarter: 2012Q4

REPORT INFORMATION
  Report Type: 
  Country: DE (occurrence: DE)
  Receive Date: 20121119
  Receipt Date: 20121205
  Transmission Date: 20130627
  Serious: Yes (Other)
  Sender: FDA-Public Use
  Company Number: DE-B.I. PHARMACEUTICALS,INC./RIDGEFIELD-2012-DE-02717DE

PATIENT
  Age: 78 Year
  Sex: Male
  Weight: 73 kg

DRUGS (5)
  1. PRADAXA [Suspect]
     Indication: ATRIAL FIBRILLATION
     Dosage: 220 mg
     Route: 048
     Dates: start: 20120831
  2. PANTOPRAZOL [Concomitant]
     Indication: DUODENAL ULCER
     Dosage: 20 mg
     Route: 048
  3. ALLOPURINOL [Concomitant]
     Indication: HYPERURICAEMIA
     Dosage: 100 mg
     Route: 048
  4. ALLOPURINOL [Concomitant]
     Indication: GOUT
  5. THIAMAZOL [Concomitant]
     Indication: HYPERTHYROIDISM
     Dosage: 5 mg
     Route: 048
     Dates: start: 201201

REACTIONS (2)
  - Injury [Not Recovered/Not Resolved]
  - Negative thoughts [Not Recovered/Not Resolved]
